FAERS Safety Report 22175285 (Version 3)
Quarter: 2023Q2

REPORT INFORMATION
  Report Type: Spontaneous
  Country: IN (occurrence: IN)
  Receive Date: 20230405
  Receipt Date: 20230427
  Transmission Date: 20230721
  Serious: Yes (Life-Threatening, Hospitalization, Other)
  Sender: FDA-Public Use
  Company Number: None

PATIENT
  Age: 3 Decade
  Sex: Male

DRUGS (8)
  1. KEPPRA [Suspect]
     Active Substance: LEVETIRACETAM
     Indication: Seizure
     Dosage: 500 MILLIGRAM, 2X/DAY (BID)
     Route: 048
  2. KEPPRA [Suspect]
     Active Substance: LEVETIRACETAM
     Dosage: INCREASED TO 1500 MILLIGRAM, 2X/DAY (BID), FOUR YEARS LATER
     Route: 048
  3. PHENYTOIN [Suspect]
     Active Substance: PHENYTOIN
     Indication: Seizure
     Dosage: 300 MILLIGRAM, ONCE DAILY (QD)
     Route: 048
  4. CLOBAZAM [Concomitant]
     Active Substance: CLOBAZAM
     Indication: Disease recurrence
     Dosage: 5 MILLIGRAM, ONCE DAILY (QD)
  5. CLOBAZAM [Concomitant]
     Active Substance: CLOBAZAM
     Indication: Seizure
  6. AMLODIPINE [Concomitant]
     Active Substance: AMLODIPINE BESYLATE
     Indication: Hypertension
     Dosage: UNK
  7. CLONIDINE [Concomitant]
     Active Substance: CLONIDINE
     Indication: Hypertension
     Dosage: UNK
  8. CARVEDILOL [Concomitant]
     Active Substance: CARVEDILOL
     Indication: Hypertension
     Dosage: UNK

REACTIONS (8)
  - Granuloma [Recovering/Resolving]
  - Nephropathy toxic [Recovering/Resolving]
  - Tubulointerstitial nephritis [Recovering/Resolving]
  - Metabolic acidosis [Recovering/Resolving]
  - Respiratory distress [Recovering/Resolving]
  - Acute kidney injury [Recovering/Resolving]
  - Pulmonary oedema [Recovering/Resolving]
  - Seizure [Recovered/Resolved]
